FAERS Safety Report 9284189 (Version 1)
Quarter: 2013Q2

REPORT INFORMATION
  Report Type: Report from Study
  Country: US (occurrence: US)
  Receive Date: 20130510
  Receipt Date: 20130510
  Transmission Date: 20140414
  Serious: Yes (Other)
  Sender: FDA-Public Use
  Company Number: US-ASTRAZENECA-2013SE31430

PATIENT
  Age: 69 Year
  Sex: Female

DRUGS (1)
  1. ANASTROZOLE [Suspect]
     Route: 065

REACTIONS (8)
  - Skin exfoliation [Unknown]
  - Rash [Unknown]
  - Pruritus [Unknown]
  - Erythema [Unknown]
  - Skin induration [Unknown]
  - Erythema [Unknown]
  - Excoriation [Unknown]
  - Retracted nipple [Unknown]
